FAERS Safety Report 12435363 (Version 1)
Quarter: 2016Q2

REPORT INFORMATION
  Report Type: Spontaneous
  Country: US (occurrence: US)
  Receive Date: 20160603
  Receipt Date: 20160603
  Transmission Date: 20160815
  Serious: No
  Sender: FDA-Public Use
  Company Number: US-ROCHE-1727443

PATIENT
  Sex: Female

DRUGS (2)
  1. KLONOPIN [Suspect]
     Active Substance: CLONAZEPAM
     Indication: DEPRESSION
     Dosage: MORNING AND EVENING
     Route: 065
  2. KLONOPIN [Suspect]
     Active Substance: CLONAZEPAM
     Dosage: MORNING AND EVENING
     Route: 065

REACTIONS (1)
  - Vision blurred [Unknown]
